FAERS Safety Report 5720984-9 (Version None)
Quarter: 2008Q2

REPORT INFORMATION
  Report Type: 
  Country: None (occurrence: None)
  Receive Date: 20080423
  Receipt Date: 20080212
  Transmission Date: 20081010
  Serious: No
  Sender: FDA-Public Use
  Company Number: 252661

PATIENT
  Age: 64 Year
  Sex: Female
  Weight: 88.4 kg

DRUGS (1)
  1. AVASTIN [Suspect]
     Indication: NON-SMALL CELL LUNG CANCER
     Dosage: 15 MG/KG ; 7.5 MG/KG

REACTIONS (1)
  - PROTEINURIA [None]
